FAERS Safety Report 6934536-6 (Version None)
Quarter: 2010Q3

REPORT INFORMATION
  Report Type: 
  Country: None (occurrence: None)
  Receive Date: 20100820
  Receipt Date: 20100810
  Transmission Date: 20110219
  Serious: Yes (Death, Other)
  Sender: FDA-Public Use
  Company Number: JP-AMGEN-US379408

PATIENT
  Sex: Female
  Weight: 55 kg

DRUGS (17)
  1. ENBREL [Suspect]
     Indication: RHEUMATOID ARTHRITIS
     Route: 058
     Dates: start: 20080715, end: 20090121
  2. ENBREL [Suspect]
     Dosage: LYOPHILIZED: 25 MG TWICE WEEKLY
     Route: 058
     Dates: start: 20080529, end: 20080714
  3. PREDNISOLONE [Suspect]
     Indication: SCLERODERMA
     Route: 048
     Dates: start: 20061215, end: 20090122
  4. ATELEC [Concomitant]
     Indication: HYPERTENSION
     Route: 048
     Dates: end: 20090122
  5. BLOPRESS [Concomitant]
     Indication: HYPERTENSION
     Route: 048
     Dates: end: 20090122
  6. ACINON [Concomitant]
     Indication: GASTROOESOPHAGEAL REFLUX DISEASE
     Route: 048
     Dates: end: 20080904
  7. ALFAROL [Concomitant]
     Indication: OSTEOPOROSIS
     Route: 048
     Dates: end: 20090122
  8. LAC B [Concomitant]
     Indication: SCLERODERMA
     Route: 048
     Dates: end: 20091128
  9. ALDOMET [Concomitant]
     Indication: HYPERTENSION
     Route: 048
     Dates: end: 20090122
  10. BASEN [Concomitant]
     Indication: DIABETES MELLITUS
     Route: 048
     Dates: end: 20090122
  11. ALOSITOL [Concomitant]
     Indication: HYPERURICAEMIA
     Route: 048
     Dates: end: 20090122
  12. ANPLAG [Concomitant]
     Indication: ANTIBIOTIC PROPHYLAXIS
     Route: 048
     Dates: end: 20090122
  13. HUMULIN R [Concomitant]
     Dosage: UNSPECIFIED
     Route: 042
  14. PROMAC [Concomitant]
     Indication: PROPHYLAXIS AGAINST GASTROINTESTINAL ULCER
     Route: 048
     Dates: end: 20090122
  15. MILTAX [Concomitant]
     Indication: RHEUMATOID ARTHRITIS
  16. CELECOXIB [Concomitant]
     Indication: RHEUMATOID ARTHRITIS
     Route: 048
     Dates: end: 20080809
  17. RABEPRAZOLE SODIUM [Concomitant]
     Indication: GASTROOESOPHAGEAL REFLUX DISEASE
     Route: 048
     Dates: start: 20080905, end: 20090122

REACTIONS (5)
  - INFECTION [None]
  - METABOLIC ACIDOSIS [None]
  - PHARYNGITIS [None]
  - RESPIRATORY ARREST [None]
  - SEPSIS [None]
